FAERS Safety Report 16586695 (Version 1)
Quarter: 2019Q3

REPORT INFORMATION
  Report Type: Spontaneous
  Country: CA (occurrence: CA)
  Receive Date: 20190717
  Receipt Date: 20190717
  Transmission Date: 20191004
  Serious: Yes (Other)
  Sender: FDA-Public Use
  Company Number: CA-TEVA-2019-CA-1078807

PATIENT
  Age: 73 Year
  Sex: Female

DRUGS (1)
  1. CLONAZEPAM. [Suspect]
     Active Substance: CLONAZEPAM
     Dosage: .25 MILLIGRAM DAILY;
     Route: 048

REACTIONS (3)
  - Dyspnoea [Unknown]
  - Somnolence [Unknown]
  - Depressed level of consciousness [Unknown]
